FAERS Safety Report 7070994-7 (Version None)
Quarter: 2010Q4

REPORT INFORMATION
  Report Type: 
  Country: None (occurrence: None)
  Receive Date: 20101029
  Receipt Date: 20101026
  Transmission Date: 20110411
  Serious: Yes (Hospitalization, Other)
  Sender: FDA-Public Use
  Company Number: US-BRISTOL-MYERS SQUIBB COMPANY-15353758

PATIENT
  Age: 45 Year
  Sex: Female

DRUGS (25)
  1. ABILIFY [Suspect]
  2. NITROGLYCERIN [Suspect]
  3. ISOSORBIDE MONONITRATE [Suspect]
  4. PARACETAMOL [Suspect]
  5. CALCIUM CARBONATE [Suspect]
  6. ASPIRIN [Suspect]
  7. DILTIAZEM HCL [Suspect]
  8. LORAZEPAM [Suspect]
  9. LOPERAMIDE HCL [Suspect]
  10. NICOTINE [Suspect]
  11. DEPAKOTE [Suspect]
  12. SPIRIVA [Suspect]
  13. TOPAMAX [Suspect]
  14. DIPHENHYDRAMINE HCL [Suspect]
  15. ZOLPIDEM [Suspect]
  16. SYNTHROID [Suspect]
  17. BACTRIM [Suspect]
  18. MAGNESIUM HYDROXIDE [Suspect]
  19. LAMICTAL [Suspect]
  20. OMEPRAZOLE [Suspect]
  21. HALDOL [Suspect]
  22. FISH OIL [Suspect]
  23. ALPRAZOLAM [Suspect]
  24. GEODON [Suspect]
     Dosage: REGIMEN 2: 80 MG
  25. ZIPRASIDONE HCL [Suspect]
     Route: 030

REACTIONS (2)
  - COMA [None]
  - MENTAL DISORDER [None]
